FAERS Safety Report 4639283-1 (Version None)
Quarter: 2005Q2

REPORT INFORMATION
  Report Type: 
  Country: None (occurrence: None)
  Receive Date: 20050418
  Receipt Date: 20050404
  Transmission Date: 20051028
  Serious: Yes (Hospitalization)
  Sender: FDA-Public Use
  Company Number: 05P-167-0296246-00

PATIENT
  Age: 60 Year
  Sex: Male
  Weight: 79 kg

DRUGS (8)
  1. BIAXIN [Suspect]
     Indication: LOWER RESPIRATORY TRACT INFECTION
     Dosage: 2 IN 1 D, PER ORAL
     Route: 048
     Dates: start: 20050214, end: 20050218
  2. CLAVULIN [Suspect]
     Indication: LOWER RESPIRATORY TRACT INFECTION
     Dosage: 625 MG, PER ORAL
     Route: 048
     Dates: start: 20050208, end: 20050214
  3. LEMSIP [Concomitant]
  4. AMLODIPINE [Concomitant]
  5. EVENING PRIMROSE OIL [Concomitant]
  6. PARACETAMOL [Concomitant]
  7. IBUPROFEN [Concomitant]
  8. MULTI-VITAMINS [Concomitant]

REACTIONS (3)
  - ABDOMINAL PAIN [None]
  - CONSTIPATION [None]
  - HEPATITIS [None]
